FAERS Safety Report 8183544-9 (Version None)
Quarter: 2012Q1

REPORT INFORMATION
  Report Type: 
  Country: None (occurrence: None)
  Receive Date: 20120305
  Receipt Date: 20120222
  Transmission Date: 20120608
  Serious: Yes (Other)
  Sender: FDA-Public Use
  Company Number: US-ELI_LILLY_AND_COMPANY-US201107001109

PATIENT
  Sex: Female

DRUGS (7)
  1. DIOVAN [Concomitant]
  2. FORTEO [Suspect]
     Indication: OSTEOPOROSIS
     Dosage: 20 UG, QD
     Route: 065
  3. PROPRANOLOL [Concomitant]
  4. FORTEO [Suspect]
     Dosage: 20 UG, QD
  5. PANTOPRAZOLE [Concomitant]
     Indication: GASTROOESOPHAGEAL REFLUX DISEASE
  6. COUMADIN [Concomitant]
  7. FORTEO [Suspect]
     Dosage: 20 UG, QD

REACTIONS (4)
  - PELVIC FRACTURE [None]
  - MEDICATION ERROR [None]
  - DEVICE FAILURE [None]
  - MUSCLE SPASMS [None]
